FAERS Safety Report 8770958 (Version 1)
Quarter: 2012Q4

REPORT INFORMATION
  Report Type: 
  Country: US (occurrence: US)
  Receive Date: 20120906
  Receipt Date: 20120906
  Transmission Date: 20130627
  Serious: Yes (Other)
  Sender: FDA-Public Use
  Company Number: US-PFIZER INC-2012215249

PATIENT
  Age: 63 Year
  Sex: Male
  Weight: 95.24 kg

DRUGS (13)
  1. LYRICA [Suspect]
     Indication: DIABETIC NEUROPATHY
     Dosage: 50 mg, 2x/day
     Route: 048
  2. LYRICA [Suspect]
     Dosage: 75 mg, 2x/day
     Route: 048
  3. VICODIN [Concomitant]
     Indication: CARPAL TUNNEL SYNDROME
     Dosage: UNK
  4. VICODIN [Concomitant]
     Indication: SURGERY
  5. APIDRA [Concomitant]
     Dosage: UNK
  6. CRESTOR [Concomitant]
     Dosage: UNK
  7. ZETIA [Concomitant]
     Dosage: UNK
  8. PHENYTEK [Concomitant]
     Dosage: 200mg and 300mg, UNK
  9. LEXAPRO [Concomitant]
     Dosage: UNK
  10. BABY ASPIRIN [Concomitant]
     Dosage: UNK
  11. FISH OIL [Concomitant]
     Dosage: UNK
  12. CENTRUM SILVER [Concomitant]
     Dosage: UNK
  13. VITAMIN C [Concomitant]
     Dosage: UNK

REACTIONS (4)
  - Carpal tunnel syndrome [Unknown]
  - Memory impairment [Unknown]
  - Pain [Unknown]
  - Influenza like illness [Unknown]
